FAERS Safety Report 17113686 (Version 1)
Quarter: 2019Q4

REPORT INFORMATION
  Report Type: Spontaneous
  Country: ES (occurrence: ES)
  Receive Date: 20191205
  Receipt Date: 20191205
  Transmission Date: 20200122
  Serious: Yes (Hospitalization)
  Sender: FDA-Public Use
  Company Number: ES-JNJFOC-20191203028

PATIENT
  Age: 11 Year
  Sex: Male
  Weight: 32.2 kg

DRUGS (4)
  1. CEFAZOLINA SODICA [Suspect]
     Active Substance: CEFAZOLIN
     Indication: OSTEOMYELITIS
     Route: 042
     Dates: start: 20191030, end: 20191103
  2. IBUPROFEN. [Suspect]
     Active Substance: IBUPROFEN
     Indication: PAIN
     Route: 048
     Dates: start: 20191029, end: 20191105
  3. PARACETAMOL [Concomitant]
     Active Substance: ACETAMINOPHEN
     Indication: PAIN
     Route: 042
     Dates: start: 20191030
  4. METAMIZOL                          /06276704/ [Suspect]
     Active Substance: METAMIZOLE SODIUM
     Indication: PAIN
     Route: 042
     Dates: start: 20191031, end: 20191104

REACTIONS (4)
  - Face oedema [Recovered/Resolved]
  - Abdominal pain [Recovered/Resolved]
  - Rash maculo-papular [Recovered/Resolved]
  - Pruritus [Recovered/Resolved]

NARRATIVE: CASE EVENT DATE: 20191102
